FAERS Safety Report 9353393 (Version 2)
Quarter: 2013Q2

REPORT INFORMATION
  Report Type: Spontaneous
  Country: US (occurrence: US)
  Receive Date: 20130618
  Receipt Date: 20130618
  Transmission Date: 20140414
  Serious: Yes (Hospitalization)
  Sender: FDA-Public Use
  Company Number: US-ASTRAZENECA-2012SE47138

PATIENT
  Age: 69 Year
  Sex: Female
  Weight: 45.4 kg

DRUGS (9)
  1. NEXIUM [Suspect]
     Indication: BARRETT^S OESOPHAGUS
     Route: 048
  2. NEXIUM [Suspect]
     Indication: HIATUS HERNIA
     Route: 048
  3. LISINOPRIL [Suspect]
     Indication: BLOOD PRESSURE ABNORMAL
     Route: 048
     Dates: start: 201109
  4. METOPROLOL [Suspect]
     Indication: BLOOD PRESSURE ABNORMAL
     Route: 048
  5. ASPIRIN [Concomitant]
     Route: 048
     Dates: start: 201303
  6. B COMPLEX [Concomitant]
     Dosage: DAILY
     Route: 048
     Dates: start: 201109
  7. VITAMIN D3 [Concomitant]
     Dosage: DAILY
     Route: 048
     Dates: start: 201109
  8. PRADASTATIN [Concomitant]
     Indication: BLOOD CHOLESTEROL ABNORMAL
     Route: 048
     Dates: start: 201304
  9. TUMS [Concomitant]

REACTIONS (7)
  - Pneumonia [Unknown]
  - Dysphagia [Unknown]
  - Cerebrovascular accident [Unknown]
  - Blood cholesterol increased [Unknown]
  - Hypertension [Unknown]
  - Mental disorder [Unknown]
  - Barrett^s oesophagus [Unknown]
